FAERS Safety Report 12638559 (Version 1)
Quarter: 2016Q3

REPORT INFORMATION
  Report Type: Spontaneous
  Country: US (occurrence: US)
  Receive Date: 20160809
  Receipt Date: 20160809
  Transmission Date: 20161109
  Serious: Yes (Other)
  Sender: FDA-Public Use
  Company Number: US-INSYS THERAPEUTICS, INC-INS201606-000269

PATIENT
  Sex: Female

DRUGS (3)
  1. OXYCODONE [Concomitant]
     Active Substance: OXYCODONE
  2. SUBSYS [Suspect]
     Active Substance: FENTANYL
     Indication: BREAKTHROUGH PAIN
  3. MORPHINE [Concomitant]
     Active Substance: MORPHINE

REACTIONS (4)
  - Nausea [Unknown]
  - Nephrolithiasis [Unknown]
  - Abdominal pain upper [Unknown]
  - Product taste abnormal [Unknown]
